FAERS Safety Report 20749915 (Version 1)
Quarter: 2022Q2

REPORT INFORMATION
  Report Type: Report from Study
  Country: US (occurrence: US)
  Receive Date: 20220426
  Receipt Date: 20220426
  Transmission Date: 20220721
  Serious: Yes (Other)
  Sender: FDA-Public Use
  Company Number: US-GILEAD-2022-0578200

PATIENT
  Sex: Male

DRUGS (24)
  1. AZTREONAM LYSINE [Suspect]
     Active Substance: AZTREONAM LYSINE
     Indication: Product used for unknown indication
     Dosage: 75 MG, TID, EVERY OTHER MONTH
     Route: 055
     Dates: start: 202108
  2. CELLCEPT [Concomitant]
     Active Substance: MYCOPHENOLATE MOFETIL
  3. PREVYMIS [Concomitant]
     Active Substance: LETERMOVIR
  4. PREDNISONE [Concomitant]
     Active Substance: PREDNISONE
  5. PRAVASTATIN [Concomitant]
     Active Substance: PRAVASTATIN
  6. CARVEDILOL [Concomitant]
     Active Substance: CARVEDILOL
  7. TACROLIMUS [Concomitant]
     Active Substance: TACROLIMUS
  8. VALTREX [Concomitant]
     Active Substance: VALACYCLOVIR HYDROCHLORIDE
  9. ADVAIR HFA [Concomitant]
     Active Substance: FLUTICASONE PROPIONATE\SALMETEROL XINAFOATE
  10. ALBUTEROL [Concomitant]
     Active Substance: ALBUTEROL
  11. LISINOPRIL [Concomitant]
     Active Substance: LISINOPRIL
  12. VITAMIN C [Concomitant]
     Active Substance: ASCORBIC ACID
  13. LORAZEPAM [Concomitant]
     Active Substance: LORAZEPAM
  14. MONTELUKAST [Concomitant]
     Active Substance: MONTELUKAST SODIUM
  15. CLOTRIMAZOLE 3 [Concomitant]
  16. BACTRIM [Concomitant]
     Active Substance: SULFAMETHOXAZOLE\TRIMETHOPRIM
  17. SILDENAFIL [Concomitant]
     Active Substance: SILDENAFIL
  18. ZINC [Concomitant]
     Active Substance: ZINC
  19. CALCIUM [Concomitant]
     Active Substance: CALCIUM
  20. VITAMINS [Concomitant]
     Active Substance: VITAMINS
  21. OMEPRAZOLE [Concomitant]
     Active Substance: OMEPRAZOLE
  22. AZITHROMYCIN [Concomitant]
     Active Substance: AZITHROMYCIN
  23. NIACINAMIDE [Concomitant]
     Active Substance: NIACINAMIDE
  24. ALBUTEROL SULFATE [Concomitant]
     Active Substance: ALBUTEROL SULFATE

REACTIONS (2)
  - Cystic fibrosis [Unknown]
  - Infection [Unknown]

NARRATIVE: CASE EVENT DATE: 20220101
